FAERS Safety Report 7780801-2 (Version None)
Quarter: 2011Q3

REPORT INFORMATION
  Report Type: 
  Country: None (occurrence: None)
  Receive Date: 20110927
  Receipt Date: 20110923
  Transmission Date: 20111222
  Serious: Yes (Disabling)
  Sender: FDA-Public Use
  Company Number: GB-PFIZER INC-2011210386

PATIENT
  Age: 41 Year
  Sex: Female
  Weight: 70 kg

DRUGS (5)
  1. VARENICLINE TARTRATE [Suspect]
     Indication: SMOKING CESSATION THERAPY
     Dosage: 1 MG, 2X/DAY
     Route: 048
     Dates: start: 20101001
  2. CODEINE PHOSPHATE [Concomitant]
     Indication: PAIN
     Dosage: 30 MG, 4X/DAY
     Route: 048
     Dates: start: 20110815
  3. VARENICLINE TARTRATE [Suspect]
     Dosage: UNK
     Route: 048
     Dates: start: 20110101
  4. AMOXICILLIN [Concomitant]
     Indication: COUGH
     Dosage: 500 MG, 3X/DAY
     Route: 048
     Dates: start: 20110701, end: 20110708
  5. FLUCLOXACILLIN [Concomitant]
     Indication: ANAL ABSCESS
     Dosage: 500 MG, 4X/DAY
     Route: 048
     Dates: start: 20110816

REACTIONS (1)
  - EPILEPSY [None]
